FAERS Safety Report 9863887 (Version 2)
Quarter: 2014Q2

REPORT INFORMATION
  Report Type: Report from Study
  Country: JP (occurrence: JP)
  Receive Date: 20140203
  Receipt Date: 20140402
  Transmission Date: 20141212
  Serious: Yes (Hospitalization)
  Sender: FDA-Public Use
  Company Number: JP-GLAXOSMITHKLINE-B0965167A

PATIENT
  Age: 76 Year
  Sex: Male
  Weight: 57 kg

DRUGS (8)
  1. SAMTIREL [Suspect]
     Indication: ANTIFUNGAL PROPHYLAXIS
     Dosage: 1500MG PER DAY
     Route: 048
     Dates: start: 20130529, end: 20130701
  2. EQUA [Suspect]
     Dosage: 100MG TWICE PER DAY
     Route: 048
     Dates: start: 20130605, end: 20130701
  3. DIOVAN [Suspect]
     Dosage: 10MG PER DAY
     Route: 048
     Dates: end: 20130701
  4. GLUFAST [Suspect]
     Dosage: 5MG THREE TIMES PER DAY
     Route: 048
     Dates: start: 20130605, end: 20130701
  5. WARFARIN [Concomitant]
     Dosage: 1.5MG PER DAY
     Route: 048
  6. MUCOSTA [Concomitant]
     Dosage: 100MG THREE TIMES PER DAY
     Route: 048
  7. PREDONINE [Concomitant]
     Indication: ORGANISING PNEUMONIA
     Dosage: 10MG PER DAY
     Route: 048
     Dates: start: 20130201, end: 20130308
  8. PREDONINE [Concomitant]
     Indication: ORGANISING PNEUMONIA
     Dosage: 30MG PER DAY
     Route: 048
     Dates: start: 20130311

REACTIONS (1)
  - Liver disorder [Recovered/Resolved]
